FAERS Safety Report 21601547 (Version 2)
Quarter: 2024Q1

REPORT INFORMATION
  Report Type: Report from Study
  Country: US (occurrence: US)
  Receive Date: 20221116
  Receipt Date: 20240126
  Transmission Date: 20240409
  Serious: Yes (Death, Hospitalization, Other)
  Sender: FDA-Public Use
  Company Number: US-ABBVIE-4158444

PATIENT
  Age: 82 Year
  Sex: Male

DRUGS (18)
  1. LUPRON [Suspect]
     Active Substance: LEUPROLIDE ACETATE
     Indication: Product used for unknown indication
     Route: 065
  2. XTANDI [Suspect]
     Active Substance: ENZALUTAMIDE
     Indication: Prostate cancer
     Dosage: 160 MG?2 MONTHS 2 DAYS?FORM STRENGTH: 40 MG
     Route: 048
     Dates: start: 20210622, end: 20210823
  3. XTANDI [Suspect]
     Active Substance: ENZALUTAMIDE
     Indication: Prostate cancer
     Dosage: FORM STRENGTH: 40 MILLIGRAM?2 MONTHS 2 DAYS
     Route: 048
     Dates: start: 20210826
  4. XTANDI [Suspect]
     Active Substance: ENZALUTAMIDE
     Indication: Prostate cancer
     Route: 048
  5. XTANDI [Suspect]
     Active Substance: ENZALUTAMIDE
     Indication: Prostate cancer
     Route: 048
  6. Toprol, xl [Concomitant]
     Indication: Product used for unknown indication
     Dates: start: 20220511
  7. VITAMIN C [Concomitant]
     Active Substance: ASCORBIC ACID
     Indication: Product used for unknown indication
  8. METOPROLOL SUCCINATE [Concomitant]
     Active Substance: METOPROLOL SUCCINATE
     Indication: Product used for unknown indication
     Route: 048
  9. ACETIC ACID [Concomitant]
     Active Substance: ACETIC ACID
     Indication: Product used for unknown indication
     Dosage: 0.25 %
     Dates: start: 20220302
  10. ACETIC ACID [Concomitant]
     Active Substance: ACETIC ACID
     Indication: Product used for unknown indication
     Route: 048
  11. HIPREX [Concomitant]
     Active Substance: METHENAMINE HIPPURATE
     Indication: Product used for unknown indication
  12. RAMIPRIL [Concomitant]
     Active Substance: RAMIPRIL
     Indication: Product used for unknown indication
     Route: 048
  13. CRESTOR [Concomitant]
     Active Substance: ROSUVASTATIN CALCIUM
     Indication: Product used for unknown indication
     Dates: start: 20220614
  14. DEMADEX [Concomitant]
     Active Substance: TORSEMIDE
     Indication: Product used for unknown indication
     Dates: start: 20220224
  15. TORSEMIDE [Concomitant]
     Active Substance: TORSEMIDE
     Indication: Product used for unknown indication
     Route: 048
  16. ALTACE [Concomitant]
     Active Substance: RAMIPRIL
     Indication: Product used for unknown indication
     Dates: start: 20220322
  17. covid vaccine [Concomitant]
     Indication: COVID-19 immunisation
     Dosage: ONE IN ONCE?FIRST DOSE
     Route: 030
  18. covid vaccine [Concomitant]
     Indication: COVID-19 immunisation
     Dosage: ONE IN ONCE?BOOSTER DOSE
     Route: 030

REACTIONS (8)
  - Death [Fatal]
  - Abdominal pain upper [Recovering/Resolving]
  - Hot flush [Recovering/Resolving]
  - Hospice care [Unknown]
  - Fatigue [Unknown]
  - Blood pressure abnormal [Unknown]
  - Hospitalisation [Unknown]
  - Urinary tract infection [Recovered/Resolved]

NARRATIVE: CASE EVENT DATE: 20210801
